FAERS Safety Report 9130228 (Version 1)
Quarter: 2013Q1

REPORT INFORMATION
  Report Type: Spontaneous
  Country: IT (occurrence: IT)
  Receive Date: 20130301
  Receipt Date: 20130301
  Transmission Date: 20140127
  Serious: Yes (Death)
  Sender: FDA-Public Use
  Company Number: IT-MYLANLABS-2013S1004096

PATIENT
  Age: 77 Year
  Sex: Male

DRUGS (2)
  1. ERLOTINIB [Suspect]
     Indication: LUNG NEOPLASM
     Dosage: 100 MG/DAY
     Route: 065
  2. METFORMIN [Suspect]
     Indication: DIABETES MELLITUS
     Route: 065

REACTIONS (4)
  - Hepatitis [Fatal]
  - Lactic acidosis [Fatal]
  - Renal impairment [Fatal]
  - Hepatic failure [Fatal]
